FAERS Safety Report 14378086 (Version 4)
Quarter: 2018Q2

REPORT INFORMATION
  Report Type: Spontaneous
  Country: GB (occurrence: GB)
  Receive Date: 20180111
  Receipt Date: 20180404
  Transmission Date: 20180711
  Serious: Yes (Hospitalization, Other)
  Sender: FDA-Public Use
  Company Number: GB-PFIZER INC-2018008586

PATIENT
  Age: 63 Year
  Sex: Male
  Weight: 73 kg

DRUGS (36)
  1. RUXOLITINIB [Suspect]
     Active Substance: RUXOLITINIB
     Indication: GRAFT VERSUS HOST DISEASE
     Dosage: 5 MG, 2X/DAY (IN THE MORNING AND AT NIGHT)
     Route: 048
     Dates: start: 20170616
  2. MIRTAZAPINE. [Concomitant]
     Active Substance: MIRTAZAPINE
     Indication: DEPRESSION
     Dosage: 45 MG, 1X/DAY (QD)
     Route: 048
     Dates: start: 20170502
  3. AZITHROMYCIN ANHYDROUS. [Concomitant]
     Active Substance: AZITHROMYCIN ANHYDROUS
     Indication: ANTIBIOTIC PROPHYLAXIS
     Dosage: 250 MG, UNK (M, W, F)
     Route: 048
     Dates: start: 20171124
  4. OMEPRAZOLE. [Concomitant]
     Active Substance: OMEPRAZOLE
     Indication: GASTRITIS PROPHYLAXIS
     Dosage: 80 MG, 1X/DAY (40 MG, BID)
     Route: 048
     Dates: start: 20160929
  5. ALENDRONIC ACID [Concomitant]
     Active Substance: ALENDRONIC ACID
     Indication: BONE DISORDER
     Dosage: 70 MG, WEEKLY (QW)
     Route: 048
     Dates: start: 20170828
  6. ARTIFICIAL TEARS [Concomitant]
     Active Substance: GLYCERIN\HYPROMELLOSES\POLYETHYLENE GLYCOL 400
     Indication: DRY EYE
     Dosage: 1 GTT, 1X/DAY (QD)
     Route: 061
     Dates: start: 20170413
  7. VALGANCICLOVIR. [Suspect]
     Active Substance: VALGANCICLOVIR
     Dosage: 900 MG, (INCREASED TO BID)
     Route: 048
     Dates: start: 2017, end: 20171016
  8. POSACONAZOLE [Concomitant]
     Active Substance: POSACONAZOLE
     Indication: ANTIFUNGAL PROPHYLAXIS
     Dosage: 300 MG, 1X/DAY (QD)
     Route: 048
     Dates: start: 20160929
  9. CALCICHEW [Concomitant]
     Active Substance: CALCIUM CARBONATE
     Indication: MINERAL SUPPLEMENTATION
     Dosage: 1 OT, 2X/DAY (BID)
     Route: 048
     Dates: start: 20160829
  10. AMLODIPINE [Concomitant]
     Active Substance: AMLODIPINE BESYLATE
     Indication: HYPERTENSION
     Dosage: 10 MG, 1X/DAY (QD)
     Route: 048
     Dates: start: 20161013
  11. PREDNISOLONE. [Concomitant]
     Active Substance: PREDNISOLONE
     Indication: GRAFT VERSUS HOST DISEASE
     Dosage: 5 MG, QD (5 MG IN 10 ML WATER USED AS MOUTHWASH)
     Route: 061
     Dates: start: 20170413
  12. BUDESONIDE. [Concomitant]
     Active Substance: BUDESONIDE
     Indication: GRAFT VERSUS HOST DISEASE
     Dosage: 9 MG, 1X/DAY (QD)
     Route: 048
     Dates: start: 20170422
  13. OCTREOTIDE. [Concomitant]
     Active Substance: OCTREOTIDE
     Indication: GRAFT VERSUS HOST DISEASE
     Dosage: 1500 UG, 3X/DAY
     Route: 058
     Dates: start: 20170427
  14. DIFFLAM [Concomitant]
     Active Substance: BENZYDAMINE HYDROCHLORIDE
     Indication: GRAFT VERSUS HOST DISEASE
     Dosage: 10 ML, QD
     Route: 061
     Dates: start: 20170422
  15. ZARZIO [Concomitant]
     Active Substance: FILGRASTIM
     Indication: GRANULOCYTES ABNORMAL
     Dosage: 300 MG, 1X/DAY (QD)
     Route: 058
  16. AMIKACIN SULFATE. [Suspect]
     Active Substance: AMIKACIN SULFATE
     Indication: SEPSIS
     Dosage: 1000 MG, 1X/DAY (QD)
     Route: 042
     Dates: start: 20171117, end: 20171119
  17. TACROLIMUS. [Concomitant]
     Active Substance: TACROLIMUS
     Indication: IMMUNOSUPPRESSION
     Dosage: 0.5 MG, 2X/DAY (BID)
     Route: 048
     Dates: start: 20171001
  18. HYDROCORTISONE. [Concomitant]
     Active Substance: HYDROCORTISONE
     Indication: GRAFT VERSUS HOST DISEASE
     Dosage: UNK
     Route: 061
     Dates: start: 20170413
  19. NYSTATIN. [Concomitant]
     Active Substance: NYSTATIN
     Indication: ANTIFUNGAL PROPHYLAXIS
     Dosage: 1 ML, 1X/DAY (QD)
     Route: 061
     Dates: start: 20170413
  20. COTRIMOXAZOLE [Concomitant]
     Active Substance: SULFAMETHOXAZOLE\TRIMETHOPRIM
     Indication: PROPHYLAXIS
     Dosage: 480 MG, QD
     Route: 048
     Dates: start: 20161103
  21. METHYLPREDNISOLONE. [Concomitant]
     Active Substance: METHYLPREDNISOLONE
     Indication: GRAFT VERSUS HOST DISEASE
     Dosage: 200 MG, UNK
     Route: 042
     Dates: start: 20170424
  22. SODIUM CHLORIDE. [Concomitant]
     Active Substance: SODIUM CHLORIDE
     Indication: GRAFT VERSUS HOST DISEASE
     Dosage: 10 ML, 1X/DAY (QD)
     Route: 061
  23. FOLIC ACID. [Concomitant]
     Active Substance: FOLIC ACID
     Indication: VITAMIN SUPPLEMENTATION
     Dosage: 5 MG, 1X/DAY (QD)
     Route: 065
     Dates: start: 20160929
  24. DARBEPOETIN ALFA [Concomitant]
     Active Substance: DARBEPOETIN ALFA
     Indication: ANAEMIA
     Dosage: 200 UG, WEEKLY (QW)
     Route: 058
     Dates: start: 20170828
  25. VALGANCICLOVIR. [Suspect]
     Active Substance: VALGANCICLOVIR
     Indication: ANTIVIRAL PROPHYLAXIS
     Dosage: 900 MG, 1X/DAY (QD (INCREASED TO BID)
     Route: 048
     Dates: start: 20170830, end: 2017
  26. PRIVIGEN [Concomitant]
     Active Substance: HUMAN IMMUNOGLOBULIN G
     Indication: SECONDARY IMMUNODEFICIENCY
     Dosage: 30 MG, UNK
     Route: 042
     Dates: start: 20171003
  27. TACROLIMUS. [Concomitant]
     Active Substance: TACROLIMUS
     Indication: GRAFT VERSUS HOST DISEASE
  28. LOPERAMIDE [Concomitant]
     Active Substance: LOPERAMIDE
     Indication: GRAFT VERSUS HOST DISEASE
     Dosage: 8 MG, 1X/DAY (QD)
     Route: 048
     Dates: start: 20170413
  29. BISOPROLOL [Concomitant]
     Active Substance: BISOPROLOL
     Dosage: 1.25 MG, 1X/DAY (QD)
     Route: 048
  30. URSODEOXYCHOLIC ACID [Concomitant]
     Active Substance: URSODIOL
     Indication: PROPHYLAXIS
     Dosage: 1200 MG, 2X/DAY (BID)
     Route: 048
     Dates: start: 20160929
  31. LIDOCAINE. [Concomitant]
     Active Substance: LIDOCAINE
     Indication: GRAFT VERSUS HOST DISEASE
     Dosage: 10 ML, QD
     Route: 061
     Dates: start: 20170413
  32. BETNOVATE [Concomitant]
     Active Substance: BETAMETHASONE
     Indication: GRAFT VERSUS HOST DISEASE
     Dosage: UNK, 2X/DAY (APPLY BD)
     Route: 061
     Dates: start: 20170413
  33. HYLO-FORTE [Concomitant]
     Active Substance: HYALURONATE SODIUM
     Indication: DRY EYE
     Dosage: UNK (APPLY 6 TIMES )
     Route: 061
     Dates: start: 20170413
  34. METHYLPREDNISOLONE. [Concomitant]
     Active Substance: METHYLPREDNISOLONE
     Dosage: 200 MG, 1X/DAY (200 MG, QD)
     Route: 042
     Dates: start: 20170427
  35. CICLOSPORIN [Concomitant]
     Active Substance: CYCLOSPORINE
     Indication: IMMUNOSUPPRESSION
     Dosage: 280 MG, 1X/DAY (QD)
     Route: 042
     Dates: start: 20161004, end: 20170102
  36. ETANERCEPT [Concomitant]
     Active Substance: ETANERCEPT
     Dosage: 25 MG, 2X/WEEK
     Route: 058
     Dates: start: 20170427, end: 20170525

REACTIONS (5)
  - Platelet count decreased [Unknown]
  - Product use in unapproved indication [Unknown]
  - Cytopenia [Not Recovered/Not Resolved]
  - Thrombocytopenia [Unknown]
  - Acute kidney injury [Not Recovered/Not Resolved]

NARRATIVE: CASE EVENT DATE: 20170616
